FAERS Safety Report 9848357 (Version 2)
Quarter: 2014Q2

REPORT INFORMATION
  Report Type: Spontaneous
  Country: FR (occurrence: FR)
  Receive Date: 20140128
  Receipt Date: 20140403
  Transmission Date: 20141212
  Serious: Yes (Hospitalization)
  Sender: FDA-Public Use
  Company Number: PHHY2014FR007881

PATIENT
  Age: 70 Year
  Sex: Female

DRUGS (9)
  1. AFINITOR [Suspect]
     Indication: BREAST CANCER
     Dosage: 10 MG, QD
     Route: 048
     Dates: start: 20131219, end: 20131230
  2. AROMASINE [Suspect]
     Indication: BREAST CANCER
     Dosage: 25 MG, QD
     Route: 048
     Dates: start: 20131219, end: 20131230
  3. AROMASINE [Suspect]
     Dates: start: 20140106
  4. LASILIX [Concomitant]
     Dosage: 20 MG, QD
     Route: 048
  5. KARDEGIC [Concomitant]
     Dosage: 75 MG, QD
     Route: 048
  6. PLAVIX [Concomitant]
     Dosage: 75 MG, QD
     Route: 048
  7. ALPRAZOLAM [Concomitant]
     Dosage: 0.5 MG, QD
     Route: 048
  8. TRIATEC [Concomitant]
     Dosage: 1.25 MG, QD
     Route: 048
  9. INEXIUM//ESOMEPRAZOLE SODIUM [Concomitant]
     Dosage: 40 MG, QD
     Route: 048

REACTIONS (3)
  - Dysentery [Recovered/Resolved]
  - Diarrhoea [Recovered/Resolved]
  - Pyrexia [Recovered/Resolved]
